FAERS Safety Report 22069023 (Version 1)
Quarter: 2023Q1

REPORT INFORMATION
  Report Type: Spontaneous
  Country: US (occurrence: US)
  Receive Date: 20230307
  Receipt Date: 20230307
  Transmission Date: 20230418
  Serious: No
  Sender: FDA-Public Use
  Company Number: US-AMNEAL PHARMACEUTICALS-2022-AMRX-01941

PATIENT
  Sex: Male
  Weight: 65.306 kg

DRUGS (4)
  1. RYTARY [Suspect]
     Active Substance: CARBIDOPA\LEVODOPA
     Indication: Parkinson^s disease
     Dosage: 3 CAPSULES, 4X/DAY
     Route: 048
  2. ROPINIROLE [Concomitant]
     Active Substance: ROPINIROLE
     Indication: Parkinson^s disease
     Route: 065
  3. AZELAIC ACID [Concomitant]
     Active Substance: AZELAIC ACID
     Indication: Parkinson^s disease
     Route: 065
  4. AMANTADINE [Concomitant]
     Active Substance: AMANTADINE
     Indication: Parkinson^s disease
     Route: 065

REACTIONS (4)
  - Palpitations [Recovered/Resolved]
  - Dizziness [Recovered/Resolved]
  - Confusional state [Recovered/Resolved]
  - Headache [Recovered/Resolved]
